FAERS Safety Report 22301603 (Version 3)
Quarter: 2025Q2

REPORT INFORMATION
  Report Type: Report from Study
  Country: DE (occurrence: DE)
  Receive Date: 20230510
  Receipt Date: 20250530
  Transmission Date: 20250716
  Serious: Yes (Other)
  Sender: AUROBINDO
  Company Number: DE-PFIZER INC-202300167272

PATIENT
  Age: 3 Month
  Sex: Female

DRUGS (10)
  1. LEVETIRACETAM [Suspect]
     Active Substance: LEVETIRACETAM
     Indication: Tonic convulsion
     Route: 065
  2. LEVETIRACETAM [Suspect]
     Active Substance: LEVETIRACETAM
     Indication: Epileptic encephalopathy
  3. ACTH [Suspect]
     Active Substance: CORTICOTROPIN
     Indication: Epileptic encephalopathy
     Route: 065
  4. ACTH [Suspect]
     Active Substance: CORTICOTROPIN
     Indication: Tonic convulsion
  5. CANNABIDIOL [Suspect]
     Active Substance: CANNABIDIOL
     Indication: Epileptic encephalopathy
     Route: 065
  6. CANNABIDIOL [Suspect]
     Active Substance: CANNABIDIOL
     Indication: Tonic convulsion
  7. CLONAZEPAM [Suspect]
     Active Substance: CLONAZEPAM
     Indication: Epileptic encephalopathy
     Route: 065
  8. CLONAZEPAM [Suspect]
     Active Substance: CLONAZEPAM
     Indication: Tonic convulsion
  9. VALPROATE [Suspect]
     Active Substance: VALPROIC ACID
     Indication: Epileptic encephalopathy
     Route: 065
  10. VALPROATE [Suspect]
     Active Substance: VALPROIC ACID
     Indication: Tonic convulsion

REACTIONS (1)
  - Therapeutic product effect incomplete [Unknown]
